FAERS Safety Report 6374299-9 (Version None)
Quarter: 2009Q3

REPORT INFORMATION
  Report Type: 
  Country: None (occurrence: None)
  Receive Date: 20090924
  Receipt Date: 20090914
  Transmission Date: 20100115
  Serious: Yes (Death, Hospitalization)
  Sender: FDA-Public Use
  Company Number: DK-JNJFOC-20090303724

PATIENT
  Sex: Female
  Weight: 55 kg

DRUGS (7)
  1. REMICADE [Suspect]
     Dosage: TOTAL OF 3 INFUSIONS RECEIVED
     Route: 042
     Dates: start: 20070101, end: 20090108
  2. REMICADE [Suspect]
     Indication: CROHN'S DISEASE
     Dosage: TOTAL OF 9 INFUSIONS RECEIVED
     Route: 042
     Dates: start: 20070101, end: 20090108
  3. CALCIUM WITH VITAMIN D [Concomitant]
  4. PREDNISOLONE [Concomitant]
  5. PINEX [Concomitant]
  6. PANTOPRAZOLE [Concomitant]
  7. VIBEDEN [Concomitant]
     Route: 030

REACTIONS (1)
  - HEPATOSPLENIC T-CELL LYMPHOMA [None]
